FAERS Safety Report 19673843 (Version 1)
Quarter: 2021Q3

REPORT INFORMATION
  Report Type: Spontaneous
  Country: US (occurrence: US)
  Receive Date: 20210809
  Receipt Date: 20210809
  Transmission Date: 20211014
  Serious: No
  Sender: FDA-Public Use
  Company Number: US-ROCHE-2679746

PATIENT
  Age: 62 Year
  Sex: Female
  Weight: 83.27 kg

DRUGS (2)
  1. PERJETA [Suspect]
     Active Substance: PERTUZUMAB
     Indication: BREAST CANCER STAGE IV
     Route: 042
     Dates: start: 20190612
  2. HERCEPTIN [Concomitant]
     Active Substance: TRASTUZUMAB
     Indication: BREAST CANCER STAGE IV
     Dosage: PIGGYBACK INFUSION
     Route: 041
     Dates: start: 20190612

REACTIONS (3)
  - No adverse event [Unknown]
  - Incorrect drug administration rate [Unknown]
  - Product preparation error [Unknown]

NARRATIVE: CASE EVENT DATE: 20200916
